FAERS Safety Report 8379215-6 (Version None)
Quarter: 2012Q2

REPORT INFORMATION
  Report Type: 
  Country: None (occurrence: None)
  Receive Date: 20120523
  Receipt Date: 20120514
  Transmission Date: 20120825
  Serious: Yes (Other)
  Sender: FDA-Public Use
  Company Number: AR-GENZYME-POMP-1002147

PATIENT
  Sex: Female
  Weight: 41.5 kg

DRUGS (1)
  1. MYOZYME [Suspect]
     Indication: GLYCOGEN STORAGE DISEASE TYPE II
     Dosage: 21.2 MG/KG, Q2W
     Route: 042
     Dates: start: 20120201

REACTIONS (2)
  - HEADACHE [None]
  - SYNCOPE [None]
